FAERS Safety Report 10189077 (Version 1)
Quarter: 2014Q2

REPORT INFORMATION
  Report Type: Spontaneous
  Country: US (occurrence: US)
  Receive Date: 20140522
  Receipt Date: 20140522
  Transmission Date: 20141212
  Serious: Yes (Death, Hospitalization, Other)
  Sender: FDA-Public Use
  Company Number: US-BAYER-2014-073765

PATIENT
  Age: 75 Year
  Sex: Male

DRUGS (3)
  1. DOBUTAMINE [Suspect]
     Dosage: 10 ?G/KG, Q1MIN
     Route: 042
  2. DOBUTAMINE [Suspect]
     Dosage: 30 ?G/KG, Q1MIN
     Route: 042
  3. ACETYLSALICYLIC ACID({=100 MG) [Suspect]
     Indication: ANTICOAGULANT THERAPY

REACTIONS (6)
  - Haemorrhage intracranial [Fatal]
  - Brain herniation [Fatal]
  - Brain midline shift [Fatal]
  - Subdural haematoma [None]
  - Blood pressure increased [None]
  - Heart rate increased [None]
